FAERS Safety Report 22048380 (Version 2)
Quarter: 2023Q1

REPORT INFORMATION
  Report Type: Spontaneous
  Country: FR (occurrence: FR)
  Receive Date: 20230301
  Receipt Date: 20230321
  Transmission Date: 20230417
  Serious: Yes (Other)
  Sender: FDA-Public Use
  Company Number: None

PATIENT
  Age: 12 Year
  Sex: Female
  Weight: 58 kg

DRUGS (4)
  1. TRAMADOL HYDROCHLORIDE [Interacting]
     Active Substance: TRAMADOL HYDROCHLORIDE
     Indication: Dysmenorrhoea
     Dosage: 30 MILLIGRAM, ONCE
     Route: 048
     Dates: start: 20230124, end: 20230124
  2. NALBUPHINE HYDROCHLORIDE [Interacting]
     Active Substance: NALBUPHINE HYDROCHLORIDE
     Indication: Dysmenorrhoea
     Dosage: 11.6 MILLIGRAM, ONCE
     Route: 042
     Dates: start: 20230124, end: 20230124
  3. ACETAMINOPHEN [Concomitant]
     Active Substance: ACETAMINOPHEN
     Indication: Product used for unknown indication
     Dosage: 1 GRAM, ONCE
     Route: 048
     Dates: start: 20230124, end: 20230124
  4. HYDROXYZINE [Concomitant]
     Active Substance: HYDROXYZINE HYDROCHLORIDE
     Indication: Product used for unknown indication
     Dosage: 50 MILLIGRAM, ONCE
     Route: 048
     Dates: start: 20230124, end: 20230124

REACTIONS (3)
  - Hallucination [Recovered/Resolved]
  - Disorientation [Recovered/Resolved]
  - Drug interaction [Recovered/Resolved]

NARRATIVE: CASE EVENT DATE: 20230124
